FAERS Safety Report 11654966 (Version 3)
Quarter: 2015Q4

REPORT INFORMATION
  Report Type: Spontaneous
  Country: JP (occurrence: JP)
  Receive Date: 20151023
  Receipt Date: 20151210
  Transmission Date: 20160304
  Serious: Yes (Life-Threatening, Other)
  Sender: FDA-Public Use
  Company Number: JP-BRISTOL-MYERS SQUIBB COMPANY-BMS-2015-070279

PATIENT
  Age: 43 Year
  Sex: Male

DRUGS (4)
  1. TRESIBA [Concomitant]
     Active Substance: INSULIN DEGLUDEC
     Indication: TYPE 2 DIABETES MELLITUS
     Dosage: 8 IU, UNK
     Route: 058
     Dates: start: 20150925
  2. METGLUCO [Suspect]
     Active Substance: METFORMIN HYDROCHLORIDE
     Indication: TYPE 2 DIABETES MELLITUS
     Dosage: 12500 MG, QD
     Route: 048
     Dates: start: 20150123, end: 20150911
  3. METGLUCO [Suspect]
     Active Substance: METFORMIN HYDROCHLORIDE
     Dosage: 5 DF, UNK
     Route: 048
     Dates: start: 20151001, end: 20151001
  4. JANUVIA [Concomitant]
     Active Substance: SITAGLIPTIN PHOSPHATE
     Indication: TYPE 2 DIABETES MELLITUS
     Dosage: 50 MG, UNK
     Route: 048
     Dates: start: 20150925

REACTIONS (3)
  - Overdose [Not Recovered/Not Resolved]
  - Lactic acidosis [Recovered/Resolved]
  - Renal disorder [Unknown]

NARRATIVE: CASE EVENT DATE: 20151002
